FAERS Safety Report 13658328 (Version 1)
Quarter: 2017Q2

REPORT INFORMATION
  Report Type: Spontaneous
  Country: US (occurrence: US)
  Receive Date: 20170616
  Receipt Date: 20170616
  Transmission Date: 20170830
  Serious: Yes (Other)
  Sender: FDA-Public Use
  Company Number: US-ENDO PHARMACEUTICALS INC-2017-003291

PATIENT
  Age: 42 Year
  Sex: Male

DRUGS (1)
  1. ACETAMINOPHEN #4 [Suspect]
     Active Substance: ACETAMINOPHEN\CODEINE PHOSPHATE
     Indication: HEADACHE
     Dosage: 2 DF, SINGLE
     Route: 048
     Dates: start: 201705, end: 20170531

REACTIONS (2)
  - Loss of consciousness [Recovered/Resolved]
  - Heart rate increased [Recovered/Resolved]

NARRATIVE: CASE EVENT DATE: 20170531
